FAERS Safety Report 25438945 (Version 1)
Quarter: 2025Q2

REPORT INFORMATION
  Report Type: Spontaneous
  Country: US (occurrence: None)
  Receive Date: 20250614
  Receipt Date: 20250614
  Transmission Date: 20250717
  Serious: Yes (Other)
  Sender: FDA-CTU
  Company Number: None

PATIENT
  Age: 73 Year
  Sex: Female
  Weight: 72 kg

DRUGS (1)
  1. ALENDRONATE [Suspect]
     Active Substance: ALENDRONATE SODIUM
     Indication: Osteoporosis
     Dates: start: 20221227

REACTIONS (6)
  - Amnesia [None]
  - Micturition urgency [None]
  - Urinary incontinence [None]
  - Cerebral ventricle dilatation [None]
  - Anal incontinence [None]
  - Normal pressure hydrocephalus [None]

NARRATIVE: CASE EVENT DATE: 20240101
